FAERS Safety Report 6048572-8 (Version None)
Quarter: 2009Q1

REPORT INFORMATION
  Report Type: 
  Country: None (occurrence: None)
  Receive Date: 20090121
  Receipt Date: 20090121
  Transmission Date: 20090719
  Serious: No
  Sender: FDA-Public Use
  Company Number: None

PATIENT
  Age: 52 Year
  Sex: Female
  Weight: 68.0396 kg

DRUGS (1)
  1. ENBREL [Suspect]
     Indication: RHEUMATOID ARTHRITIS
     Dosage: 50MG 1 X WEEKLY SQ
     Route: 058
     Dates: start: 20080601, end: 20081201

REACTIONS (7)
  - CONTUSION [None]
  - ERYTHEMA OF EYELID [None]
  - EYELID OEDEMA [None]
  - EYELIDS PRURITUS [None]
  - INJECTION SITE HAEMATOMA [None]
  - SKIN DISORDER [None]
  - SKIN EXFOLIATION [None]
